FAERS Safety Report 6301376-0 (Version None)
Quarter: 2009Q3

REPORT INFORMATION
  Report Type: 
  Country: None (occurrence: None)
  Receive Date: 20090807
  Receipt Date: 20090729
  Transmission Date: 20100115
  Serious: Yes (Hospitalization)
  Sender: FDA-Public Use
  Company Number: FR-JNJFOC-20090406533

PATIENT
  Sex: Female

DRUGS (4)
  1. MOTILIUM [Suspect]
     Indication: VOMITING
     Route: 065
  2. TRAMADOL HCL [Suspect]
     Indication: DRUG USE FOR UNKNOWN INDICATION
     Route: 048
  3. ARESTAL [Suspect]
     Indication: VOMITING
     Route: 065
  4. SPASFON [Suspect]
     Indication: VOMITING
     Route: 065

REACTIONS (1)
  - GRAND MAL CONVULSION [None]
